FAERS Safety Report 6748080-2 (Version None)
Quarter: 2010Q2

REPORT INFORMATION
  Report Type: 
  Country: None (occurrence: None)
  Receive Date: 20100531
  Receipt Date: 20100517
  Transmission Date: 20101027
  Serious: Yes (Hospitalization)
  Sender: FDA-Public Use
  Company Number: US-ASTRAZENECA-2010SE24699

PATIENT
  Sex: Female

DRUGS (1)
  1. SEROQUEL [Suspect]
     Dosage: 300-700 MG
     Route: 048
     Dates: start: 20020301

REACTIONS (3)
  - BIPOLAR I DISORDER [None]
  - OBESITY [None]
  - PERSONALITY DISORDER [None]
